FAERS Safety Report 16015256 (Version 2)
Quarter: 2019Q2

REPORT INFORMATION
  Report Type: Report from Study
  Country: JP (occurrence: JP)
  Receive Date: 20190228
  Receipt Date: 20190412
  Transmission Date: 20190711
  Serious: Yes (Death, Other)
  Sender: FDA-Public Use
  Company Number: JP-AMGEN-JPNNI2019029036

PATIENT
  Age: 74 Year
  Sex: Male
  Weight: 51.7 kg

DRUGS (4)
  1. ETELCALCETIDE [Suspect]
     Active Substance: ETELCALCETIDE
     Dosage: 2.5 MILLIGRAM, 3 TIMES/WK
     Route: 010
     Dates: start: 20171208, end: 20180226
  2. CALTAN [Concomitant]
     Active Substance: CALCIUM CARBONATE
     Indication: HYPERPHOSPHATAEMIA
     Dosage: 1000 MILLIGRAM
     Route: 048
  3. ETELCALCETIDE [Suspect]
     Active Substance: ETELCALCETIDE
     Indication: HYPERPARATHYROIDISM SECONDARY
     Dosage: 5 MILLIGRAM, 3 TIMES/WK
     Route: 010
     Dates: start: 20171124, end: 20171207
  4. OXAROL [Concomitant]
     Active Substance: MAXACALCITOL
     Dosage: 2.5 MICROGRAM
     Route: 010

REACTIONS (1)
  - Cardiac failure acute [Fatal]

NARRATIVE: CASE EVENT DATE: 20180226
